FAERS Safety Report 9091491 (Version 2)
Quarter: 2013Q2

REPORT INFORMATION
  Report Type: Spontaneous
  Country: DE (occurrence: DE)
  Receive Date: 20130201
  Receipt Date: 20130402
  Transmission Date: 20140414
  Serious: Yes (Death, Other)
  Sender: FDA-Public Use
  Company Number: DE-ASTELLAS-2013US001110

PATIENT
  Sex: Male

DRUGS (1)
  1. AMBISOME [Suspect]
     Indication: ZYGOMYCOSIS
     Dosage: 3 MG, UID/QD
     Route: 065
     Dates: start: 20120704

REACTIONS (2)
  - Encephalopathy [Fatal]
  - Dementia [Fatal]
